FAERS Safety Report 11623239 (Version 1)
Quarter: 2015Q4

REPORT INFORMATION
  Report Type: Spontaneous
  Country: CA (occurrence: US)
  Receive Date: 20151013
  Receipt Date: 20151013
  Transmission Date: 20160304
  Serious: No
  Sender: FDA-Public Use
  Company Number: CA-JNJFOC-20150104826

PATIENT
  Age: 81 Year
  Sex: Female
  Weight: 70.31 kg

DRUGS (2)
  1. TYLENOL BACK PAIN CAP 40S [Suspect]
     Active Substance: ACETAMINOPHEN\METHOCARBAMOL
     Route: 048
  2. TYLENOL BACK PAIN CAP 40S [Suspect]
     Active Substance: ACETAMINOPHEN\METHOCARBAMOL
     Indication: BACK PAIN
     Dosage: 1 X DAY FOR ABOUT THREE DAYS MAY BE TWO
     Route: 048

REACTIONS (2)
  - Expired product administered [Unknown]
  - Product quality issue [None]
